FAERS Safety Report 4647631-1 (Version None)
Quarter: 2005Q2

REPORT INFORMATION
  Report Type: 
  Country: None (occurrence: None)
  Receive Date: 20050428
  Receipt Date: 20050329
  Transmission Date: 20051028
  Serious: Yes (Hospitalization)
  Sender: FDA-Public Use
  Company Number: US-MERCK-0503USA05122

PATIENT
  Age: 72 Year
  Sex: Female

DRUGS (6)
  1. VYTORIN [Suspect]
     Indication: BLOOD CHOLESTEROL INCREASED
     Route: 048
     Dates: start: 20041201, end: 20050326
  2. NORVASC [Concomitant]
     Route: 048
  3. BENICAR [Concomitant]
     Route: 048
  4. TOPROL-XL [Concomitant]
     Route: 048
  5. LEXAPRO [Concomitant]
     Route: 048
  6. ASPIRIN [Concomitant]
     Route: 048

REACTIONS (3)
  - CARDIAC FAILURE CONGESTIVE [None]
  - HYPOVOLAEMIA [None]
  - RHABDOMYOLYSIS [None]
